FAERS Safety Report 15546034 (Version 1)
Quarter: 2018Q4

REPORT INFORMATION
  Report Type: Spontaneous
  Country: US (occurrence: US)
  Receive Date: 20181023
  Receipt Date: 20181023
  Transmission Date: 20190205
  Serious: Yes (Other)
  Sender: FDA-Public Use
  Company Number: None

PATIENT
  Age: 70 Year
  Sex: Female
  Weight: 44.1 kg

DRUGS (5)
  1. VITAMIN D [Concomitant]
     Active Substance: CHOLECALCIFEROL
  2. KLOR-CON M20 [Concomitant]
     Active Substance: POTASSIUM CHLORIDE
  3. ATENOLOL. [Concomitant]
     Active Substance: ATENOLOL
  4. SIMVASTATIN. [Concomitant]
     Active Substance: SIMVASTATIN
  5. CAPECITABINE. [Suspect]
     Active Substance: CAPECITABINE
     Indication: RECTAL CANCER
     Route: 048
     Dates: start: 20171112

REACTIONS (2)
  - Diarrhoea [None]
  - Therapy change [None]

NARRATIVE: CASE EVENT DATE: 20181023
